FAERS Safety Report 10598502 (Version 1)
Quarter: 2014Q4

REPORT INFORMATION
  Report Type: Spontaneous
  Country: US (occurrence: None)
  Receive Date: 20141119
  Receipt Date: 20141119
  Transmission Date: 20150529
  Serious: No
  Sender: FDA-Public Use
  Company Number: 1000071517

PATIENT
  Sex: Female

DRUGS (15)
  1. GABAPENTIN (GABAPENTIN) (GABAPENTIN) [Concomitant]
     Active Substance: GABAPENTIN
  2. METOPROLOL (METOPROLOL) (25 MILLIGRAM) (METOPROLOL) [Concomitant]
  3. PRAVASTATIN (PRAVASTATIN) (PRAVASTATIN) [Concomitant]
  4. TUDORZA PRESSAIR [Suspect]
     Active Substance: ACLIDINIUM BROMIDE
     Indication: CHRONIC OBSTRUCTIVE PULMONARY DISEASE
     Dosage: (400 MCG, 2 IN 1 D), RESPIRATORY (INHALATION)
     Route: 055
     Dates: start: 20140930, end: 20141004
  5. FLEXERIL [Suspect]
     Active Substance: CYCLOBENZAPRINE HYDROCHLORIDE
     Dosage: 20 MG (10 MG, 2 IN 1 D)
     Dates: start: 20140930, end: 20141004
  6. LISINOPRIL (LISINOPRIL) (LISINOPRIL) [Concomitant]
     Active Substance: LISINOPRIL
  7. ZOLOFT (SERTRALINE HYDROCHLORIDE) (SERTRALINE HYDROCHLORIDE) [Concomitant]
  8. MIRTAZAPINE (MIRTAZAPINE) (MIRTAZAPINE) [Concomitant]
     Active Substance: MIRTAZAPINE
  9. PLAVIX [Concomitant]
     Active Substance: CLOPIDOGREL BISULFATE
  10. OXYCODONE / ACETAMINOPHEN (OXYCODONE / ACETAMINOPHEN) (OXYCODONE / ACETAMINOPHEN) [Concomitant]
  11. SYNTHROID (LEVOTHYROXINE SODIUM) (LEVOTHYROXINE SODIUM) [Concomitant]
  12. LASIX [Concomitant]
     Active Substance: FUROSEMIDE
  13. ASPIRIN (ACETYLSALICYLIC ACID) (ACETYLSALICYLIC ACID) [Concomitant]
     Active Substance: ASPIRIN
  14. MIRAPEX (PRAMIPEXOLE DIHYDROCHLORIDE) (PRAMIPEXOLE DIHYDROCHLORIDE) [Concomitant]
  15. POTASSIUM (POTASSIUM) (POTASSIUM) [Concomitant]

REACTIONS (1)
  - Hallucination [None]

NARRATIVE: CASE EVENT DATE: 20141003
